FAERS Safety Report 7509650-7 (Version None)
Quarter: 2011Q2

REPORT INFORMATION
  Report Type: 
  Country: None (occurrence: None)
  Receive Date: 20110527
  Receipt Date: 20110516
  Transmission Date: 20111010
  Serious: Yes (Hospitalization)
  Sender: FDA-Public Use
  Company Number: CA-JNJFOC-20110507614

PATIENT
  Sex: Male
  Weight: 88.4 kg

DRUGS (5)
  1. ACTONEL [Concomitant]
  2. PURINETHOL [Concomitant]
  3. AMITRIPTYLINE HCL [Concomitant]
  4. MESALAMINE [Concomitant]
  5. REMICADE [Suspect]
     Indication: CROHN'S DISEASE
     Route: 042
     Dates: start: 20090812

REACTIONS (1)
  - CONDITION AGGRAVATED [None]
